FAERS Safety Report 18945397 (Version 3)
Quarter: 2021Q4

REPORT INFORMATION
  Report Type: Spontaneous
  Country: GB (occurrence: GB)
  Receive Date: 20210226
  Receipt Date: 20211203
  Transmission Date: 20220303
  Serious: Yes (Other)
  Sender: FDA-Public Use
  Company Number: None

PATIENT
  Age: 60 Year
  Sex: Female
  Weight: 69 kg

DRUGS (2)
  1. VAGIFEM [Suspect]
     Active Substance: ESTRADIOL
     Indication: Atrophy
  2. VAGIFEM [Suspect]
     Active Substance: ESTRADIOL
     Indication: Ill-defined disorder
     Dosage: 1
     Route: 067
     Dates: start: 20210105, end: 20210107

REACTIONS (2)
  - Depression [Unknown]
  - Anxiety [Unknown]
